FAERS Safety Report 17970402 (Version 2)
Quarter: 2020Q3

REPORT INFORMATION
  Report Type: Spontaneous
  Country: FR (occurrence: FR)
  Receive Date: 20200701
  Receipt Date: 20200826
  Transmission Date: 20201103
  Serious: Yes (Hospitalization)
  Sender: FDA-Public Use
  Company Number: FR-MYLANLABS-2020M1059485

PATIENT
  Age: 19 Year
  Sex: Female

DRUGS (1)
  1. EFFENTORA [Suspect]
     Active Substance: FENTANYL CITRATE
     Indication: PRODUCT USED FOR UNKNOWN INDICATION
     Dosage: 1 DOSAGE FORM, PRN
     Route: 002
     Dates: start: 2017, end: 202006

REACTIONS (1)
  - Drug use disorder [Not Recovered/Not Resolved]

NARRATIVE: CASE EVENT DATE: 202005
